FAERS Safety Report 21242852 (Version 3)
Quarter: 2022Q3

REPORT INFORMATION
  Report Type: Spontaneous
  Country: US (occurrence: US)
  Receive Date: 20220823
  Receipt Date: 20220926
  Transmission Date: 20221027
  Serious: No
  Sender: FDA-Public Use
  Company Number: US-PFIZER INC-PV202200048506

PATIENT
  Age: 72 Year
  Sex: Female

DRUGS (2)
  1. IBRANCE [Suspect]
     Active Substance: PALBOCICLIB
     Indication: Breast cancer female
     Dosage: 75 MG, CYCLIC(21 DAYS AND 7 DAYS OFF REPEAT EVERY 28 DAYS)
     Route: 048
     Dates: start: 20220202
  2. FASLODEX [Concomitant]
     Active Substance: FULVESTRANT
     Dosage: 250/5 ML

REACTIONS (4)
  - Stomatitis [Unknown]
  - Oral pain [Not Recovered/Not Resolved]
  - Alopecia [Not Recovered/Not Resolved]
  - White blood cell count decreased [Not Recovered/Not Resolved]

NARRATIVE: CASE EVENT DATE: 20220101
